FAERS Safety Report 21767763 (Version 1)
Quarter: 2022Q4

REPORT INFORMATION
  Report Type: Spontaneous
  Country: FR (occurrence: FR)
  Receive Date: 20221222
  Receipt Date: 20221222
  Transmission Date: 20230113
  Serious: Yes (Death, Other)
  Sender: FDA-Public Use
  Company Number: FR-ROCHE-3114099

PATIENT
  Age: 69 Year
  Sex: Female

DRUGS (4)
  1. BEVACIZUMAB [Suspect]
     Active Substance: BEVACIZUMAB
     Indication: Non-small cell lung cancer
     Dosage: 15 MILLIGRAM/KILOGRAM EVERY 1 CYCLE(S) DAY1 OF CYCLE OF 21 DAYS
     Route: 042
     Dates: start: 20191128, end: 20200917
  2. ATEZOLIZUMAB [Suspect]
     Active Substance: ATEZOLIZUMAB
     Indication: Non-small cell lung cancer
     Dosage: 1200 MILLIGRAM EVERY 1CYCLE(S) DAY1 OF CYCLE OF 21 DAYS
     Route: 041
     Dates: start: 20191128, end: 20200917
  3. CISPLATIN [Concomitant]
     Active Substance: CISPLATIN
     Indication: Non-small cell lung cancer
     Dosage: 75 MILLIGRAM/SQ. METER EVERY 1 CYCLE(S) DAY1 OF CYCLE OF 21 DAYS
     Dates: start: 20191128, end: 20200130
  4. PEMETREXED [Concomitant]
     Active Substance: PEMETREXED
     Indication: Non-small cell lung cancer
     Dosage: 500 MILLIGRAM/SQ. METER EVERY 1 CYCLE(S) DAY1 OF CYCLE OF 21 DAYS
     Dates: start: 20191128, end: 20200917

REACTIONS (2)
  - Non-small cell lung cancer [Fatal]
  - Hypertension [Fatal]

NARRATIVE: CASE EVENT DATE: 20201008
